FAERS Safety Report 5840103-8 (Version None)
Quarter: 2008Q3

REPORT INFORMATION
  Report Type: 
  Country: None (occurrence: None)
  Receive Date: 20080811
  Receipt Date: 20080801
  Transmission Date: 20090109
  Serious: Yes (Hospitalization)
  Sender: FDA-Public Use
  Company Number: B0532013A

PATIENT
  Age: 39 Year
  Sex: Female
  Weight: 83 kg

DRUGS (2)
  1. LAPATINIB [Suspect]
     Indication: BREAST CANCER METASTATIC
     Dosage: 1250MG PER DAY
     Route: 048
     Dates: start: 20080529, end: 20080608
  2. CAPECITABINE [Suspect]
     Indication: BREAST CANCER METASTATIC
     Dosage: 2000MG PER DAY
     Route: 048
     Dates: start: 20080529, end: 20080608

REACTIONS (4)
  - COUGH [None]
  - FEBRILE NEUTROPENIA [None]
  - PNEUMONIA [None]
  - PYREXIA [None]
